FAERS Safety Report 23324771 (Version 3)
Quarter: 2024Q1

REPORT INFORMATION
  Report Type: Spontaneous
  Country: US (occurrence: US)
  Receive Date: 20231221
  Receipt Date: 20240204
  Transmission Date: 20240410
  Serious: No
  Sender: FDA-Public Use
  Company Number: US-OPELLA-2023OHG018378

PATIENT
  Age: 23 Year
  Sex: Male

DRUGS (1)
  1. XYZAL ALLERGY 24HR [Suspect]
     Active Substance: LEVOCETIRIZINE DIHYDROCHLORIDE
     Indication: Product used for unknown indication
     Dosage: FILM COATED TABLET

REACTIONS (3)
  - Wrong dose [Unknown]
  - No adverse event [Unknown]
  - Incorrect dose administered [Unknown]
